FAERS Safety Report 8249217-9 (Version None)
Quarter: 2012Q1

REPORT INFORMATION
  Report Type: 
  Country: None (occurrence: None)
  Receive Date: 20120315
  Receipt Date: 20120305
  Transmission Date: 20120608
  Serious: Yes (Hospitalization)
  Sender: FDA-Public Use
  Company Number: 2012031520

PATIENT
  Age: 77 Year
  Sex: Female

DRUGS (19)
  1. ROPINIROLE [Concomitant]
  2. CALCIUM WITH VITAMIN D [Concomitant]
  3. DUONEB [Concomitant]
  4. HIZENTRA [Suspect]
     Indication: IMMUNODEFICIENCY COMMON VARIABLE
     Dosage: 13 G 1X/WEEK, 1 GM (5ML) ON 4 SITES OVER 1-2 HOURS SUBCUTANEOUS
     Route: 058
     Dates: start: 20120302, end: 20120302
  5. PROTONIX [Concomitant]
  6. DIOVAN [Concomitant]
  7. HIZENTRA [Suspect]
     Indication: IMMUNODEFICIENCY COMMON VARIABLE
     Dates: start: 20110302
  8. MIRALAX [Concomitant]
  9. WARFARIN SODIUM [Concomitant]
  10. HIZENTRA [Suspect]
     Indication: IMMUNODEFICIENCY COMMON VARIABLE
     Dosage: 4 GM (20 ML) ON FOUR SITES OVER 1-2 HOURS SUBCUTANEOUS
     Route: 058
     Dates: start: 20120302, end: 20120302
  11. VERAPAMIL [Concomitant]
  12. DOXYCYCLINE HYCLATE [Concomitant]
  13. VITAMIN D [Concomitant]
  14. PRAVASTATIN [Concomitant]
  15. TRAZODONE HCL [Concomitant]
  16. CARAFATE [Concomitant]
  17. MUCINEX [Concomitant]
  18. VITAMIN B12 [Concomitant]
  19. FERROUS SULFATE TAB [Concomitant]

REACTIONS (6)
  - INFECTION [None]
  - INFUSION SITE SWELLING [None]
  - INFLUENZA [None]
  - CATARACT [None]
  - FALL [None]
  - MALAISE [None]
